FAERS Safety Report 7594839-1 (Version None)
Quarter: 2011Q3

REPORT INFORMATION
  Report Type: 
  Country: None (occurrence: None)
  Receive Date: 20110707
  Receipt Date: 20110630
  Transmission Date: 20111222
  Serious: Yes (Death)
  Sender: FDA-Public Use
  Company Number: US-SANOFI-AVENTIS-2011SA038493

PATIENT
  Age: 49 Year
  Sex: Male
  Weight: 94 kg

DRUGS (14)
  1. FENTANYL [Concomitant]
  2. ZOFRAN [Concomitant]
     Route: 048
  3. DEXAMETHASONE [Concomitant]
  4. COLACE [Concomitant]
  5. PEPCID [Concomitant]
  6. PHENERGAN HCL [Concomitant]
  7. LOVENOX [Suspect]
     Indication: PULMONARY EMBOLISM
     Route: 065
     Dates: start: 20110112, end: 20110613
  8. ZOLOFT [Concomitant]
  9. COMPAZINE [Concomitant]
  10. LOVENOX [Suspect]
     Indication: DEEP VEIN THROMBOSIS
     Route: 065
     Dates: start: 20110112, end: 20110613
  11. COUMADIN [Suspect]
     Indication: ATRIAL FIBRILLATION
     Route: 065
  12. ATIVAN [Concomitant]
  13. VICODIN [Concomitant]
     Dosage: 5/500
  14. ALL OTHER THERAPEUTIC PRODUCTS [Concomitant]

REACTIONS (1)
  - DISEASE PROGRESSION [None]
